FAERS Safety Report 7941018-1 (Version None)
Quarter: 2011Q4

REPORT INFORMATION
  Report Type: 
  Country: None (occurrence: None)
  Receive Date: 20111128
  Receipt Date: 20111116
  Transmission Date: 20120403
  Serious: Yes (Hospitalization)
  Sender: FDA-Public Use
  Company Number: US-BRISTOL-MYERS SQUIBB COMPANY-16235871

PATIENT
  Age: 3 Year
  Sex: Male

DRUGS (1)
  1. ARIPIPRAZOLE [Suspect]

REACTIONS (6)
  - DYSARTHRIA [None]
  - GAIT DISTURBANCE [None]
  - VISUAL IMPAIRMENT [None]
  - NYSTAGMUS [None]
  - SOMNOLENCE [None]
  - STARING [None]
